FAERS Safety Report 8355187-5 (Version None)
Quarter: 2012Q2

REPORT INFORMATION
  Report Type: 
  Country: None (occurrence: None)
  Receive Date: 20120510
  Receipt Date: 20120430
  Transmission Date: 20120825
  Serious: Yes (Death, Hospitalization, Other)
  Sender: FDA-Public Use
  Company Number: 2012P1019283

PATIENT
  Age: 24 Year
  Sex: Male

DRUGS (4)
  1. DOMPERIDON (NO PREF. NAME) [Suspect]
     Indication: OVERDOSE
     Dosage: 50 MG;X1;
  2. CHLOROQUINE DIPHOSPHATE [Suspect]
     Indication: OVERDOSE
     Dosage: 14500 MG;X1;
  3. MIDAZOLAM [Suspect]
     Indication: OVERDOSE
     Dosage: 150 MG;X1;
  4. ONDANSETRON [Suspect]
     Indication: OVERDOSE
     Dosage: 40 MG;X1;

REACTIONS (7)
  - LOSS OF CONSCIOUSNESS [None]
  - VENTRICULAR TACHYCARDIA [None]
  - BRAIN DEATH [None]
  - BLOOD PRESSURE DECREASED [None]
  - POISONING DELIBERATE [None]
  - NODAL RHYTHM [None]
  - VENTRICULAR FIBRILLATION [None]
